FAERS Safety Report 5113699-1 (Version None)
Quarter: 2006Q3

REPORT INFORMATION
  Report Type: 
  Country: None (occurrence: None)
  Receive Date: 20060925
  Receipt Date: 20060622
  Transmission Date: 20061208
  Serious: Yes (Hospitalization)
  Sender: FDA-Public Use
  Company Number: FR-AVENTIS-200612285FR

PATIENT
  Age: 86 Year
  Sex: Male
  Weight: 66 kg

DRUGS (10)
  1. DAONIL [Suspect]
     Indication: DIABETES MELLITUS NON-INSULIN-DEPENDENT
     Dosage: DOSE: UNKNOWN
     Route: 048
     Dates: start: 19960101, end: 20060601
  2. BEFIZAL [Suspect]
     Indication: DRUG USE FOR UNKNOWN INDICATION
     Dosage: DOSE: UNKNOWN
     Dates: start: 20010101, end: 20060601
  3. APROVEL [Concomitant]
     Indication: DRUG USE FOR UNKNOWN INDICATION
     Route: 048
  4. DAONIL [Concomitant]
     Indication: DRUG USE FOR UNKNOWN INDICATION
     Route: 048
     Dates: start: 19960101
  5. GLUCOR [Concomitant]
     Indication: DRUG USE FOR UNKNOWN INDICATION
     Route: 048
     Dates: start: 20010101
  6. BEFIZAL [Concomitant]
     Route: 048
     Dates: start: 20010101
  7. ESBERIVEN FORT [Concomitant]
     Indication: DRUG USE FOR UNKNOWN INDICATION
  8. TANAKAN [Concomitant]
     Indication: DRUG USE FOR UNKNOWN INDICATION
     Route: 048
  9. PROSCAR [Concomitant]
     Indication: DRUG USE FOR UNKNOWN INDICATION
  10. OXYGENOTHERAPY [Concomitant]
     Dosage: DOSE: 1.5 L/MIN 20 H/24 H
     Dates: start: 20060601

REACTIONS (12)
  - BENIGN PROSTATIC HYPERPLASIA [None]
  - BLOOD LACTATE DEHYDROGENASE INCREASED [None]
  - BULLOUS LUNG DISEASE [None]
  - COUGH [None]
  - DIARRHOEA [None]
  - DILATATION VENTRICULAR [None]
  - DYSPNOEA [None]
  - EOSINOPHILIA [None]
  - HYPERPROTEINAEMIA [None]
  - PNEUMONITIS [None]
  - PULMONARY FIBROSIS [None]
  - WEIGHT DECREASED [None]
